FAERS Safety Report 13777111 (Version 2)
Quarter: 2017Q3

REPORT INFORMATION
  Report Type: Spontaneous
  Country: CM (occurrence: CM)
  Receive Date: 20170721
  Receipt Date: 20170922
  Transmission Date: 20171127
  Serious: Yes (Life-Threatening, Hospitalization, Other)
  Sender: FDA-Public Use
  Company Number: CM-IMPAX LABORATORIES, INC-2017-IPXL-02189

PATIENT
  Age: 43 Year
  Sex: Male

DRUGS (2)
  1. ALBENZA [Suspect]
     Active Substance: ALBENDAZOLE
     Indication: FILARIASIS LYMPHATIC
     Dosage: 1 DF, UNK
     Route: 065
     Dates: start: 20170704
  2. MECTIZAN [Suspect]
     Active Substance: IVERMECTIN
     Indication: FILARIASIS LYMPHATIC
     Dosage: 4 DF, UNK
     Route: 065
     Dates: start: 20170704

REACTIONS (6)
  - Incoherent [Unknown]
  - Coma [Not Recovered/Not Resolved]
  - Arthralgia [Unknown]
  - Gait disturbance [Recovered/Resolved]
  - Myalgia [Unknown]
  - Asthenia [Unknown]

NARRATIVE: CASE EVENT DATE: 20170704
